FAERS Safety Report 14267964 (Version 1)
Quarter: 2017Q4

REPORT INFORMATION
  Report Type: Spontaneous
  Country: US (occurrence: US)
  Receive Date: 20171211
  Receipt Date: 20171211
  Transmission Date: 20180321
  Serious: Yes (Disabling)
  Sender: FDA-Public Use
  Company Number: None

PATIENT
  Age: 30 Year
  Sex: Female
  Weight: 76.5 kg

DRUGS (8)
  1. MAGNESIUM [Concomitant]
     Active Substance: MAGNESIUM
  2. VITAMIN B COMPLEX [Concomitant]
     Active Substance: CYANOCOBALAMIN\DEXPANTHENOL\NIACINAMIDE\PYRIDOXINE HYDROCHLORIDE\RIBOFLAVIN 5^-PHOSPHATE SODIUM\THIAMINE HYDROCHLORIDE\VITAMIN B COMPLEX
  3. IRON [Concomitant]
     Active Substance: IRON
  4. CIPROFLOXACIN HCL [Suspect]
     Active Substance: CIPROFLOXACIN HYDROCHLORIDE
     Indication: URINARY TRACT INFECTION
     Dosage: ?          QUANTITY:14 TABLET(S);?
     Route: 048
     Dates: start: 20171205, end: 20171206
  5. FOLIC ACID. [Concomitant]
     Active Substance: FOLIC ACID
  6. GARLIC. [Concomitant]
     Active Substance: GARLIC
  7. KLONOPIN [Concomitant]
     Active Substance: CLONAZEPAM
  8. TUMERIC [Concomitant]
     Active Substance: HERBALS\TURMERIC

REACTIONS (5)
  - Arthralgia [None]
  - Loss of personal independence in daily activities [None]
  - Dizziness [None]
  - Hypoaesthesia [None]
  - Gait disturbance [None]

NARRATIVE: CASE EVENT DATE: 20171205
